FAERS Safety Report 18692371 (Version 1)
Quarter: 2021Q1

REPORT INFORMATION
  Report Type: Other
  Country: RU (occurrence: RU)
  Receive Date: 20210103
  Receipt Date: 20210103
  Transmission Date: 20210419
  Serious: Yes (Hospitalization)
  Sender: FDA-Public Use
  Company Number: RU-GLENMARK PHARMACEUTICALS-2020GMK051123

PATIENT
  Age: 61 Year
  Sex: Female
  Weight: 68 kg

DRUGS (1)
  1. GLEVO [Suspect]
     Active Substance: LEVOFLOXACIN
     Indication: COVID-19
     Dosage: 500 MILLIGRAM, (SINGLE DOSE)
     Route: 048
     Dates: start: 20201213, end: 20201213

REACTIONS (5)
  - Chest discomfort [Recovering/Resolving]
  - Hyperaemia [Recovering/Resolving]
  - Dysphonia [Recovering/Resolving]
  - Localised oedema [Recovering/Resolving]
  - Face oedema [Recovering/Resolving]

NARRATIVE: CASE EVENT DATE: 20201213
